FAERS Safety Report 16959290 (Version 1)
Quarter: 2019Q4

REPORT INFORMATION
  Report Type: Report from Study
  Country: None (occurrence: RO)
  Receive Date: 20191024
  Receipt Date: 20191024
  Transmission Date: 20200122
  Serious: Yes (Hospitalization)
  Sender: FDA-Public Use
  Company Number: RO-ABBVIE-19K-135-2973483-00

PATIENT
  Age: 44 Year
  Sex: Female

DRUGS (2)
  1. HUMIRA [Suspect]
     Active Substance: ADALIMUMAB
     Indication: ANKYLOSING SPONDYLITIS
     Route: 058
     Dates: start: 20111215, end: 201908
  2. NEXIUM [Concomitant]
     Active Substance: ESOMEPRAZOLE MAGNESIUM
     Indication: GASTRIC ULCER
     Dosage: STARTED BEFORE ABBVIE THERAPY
     Route: 048

REACTIONS (11)
  - Pityriasis [Recovered/Resolved]
  - Synovial cyst [Not Recovered/Not Resolved]
  - Vulvovaginal inflammation [Not Recovered/Not Resolved]
  - Menorrhagia [Not Recovered/Not Resolved]
  - Hypoaesthesia [Not Recovered/Not Resolved]
  - Arthralgia [Recovering/Resolving]
  - Throat irritation [Not Recovered/Not Resolved]
  - Pain in extremity [Recovering/Resolving]
  - Back pain [Recovering/Resolving]
  - Red blood cell sedimentation rate abnormal [Not Recovered/Not Resolved]
  - Burn oral cavity [Not Recovered/Not Resolved]

NARRATIVE: CASE EVENT DATE: 2016
